FAERS Safety Report 7230528-0 (Version None)
Quarter: 2011Q1

REPORT INFORMATION
  Report Type: 
  Country: None (occurrence: None)
  Receive Date: 20110118
  Receipt Date: 20110107
  Transmission Date: 20110831
  Serious: No
  Sender: FDA-Public Use
  Company Number: US-PFIZER INC-2011005880

PATIENT
  Age: 57 Year
  Sex: Female

DRUGS (2)
  1. EFFEXOR [Suspect]
  2. LIPITOR [Suspect]
     Dosage: UNK

REACTIONS (3)
  - FATIGUE [None]
  - BACK PAIN [None]
  - PAIN IN EXTREMITY [None]
